FAERS Safety Report 18378674 (Version 3)
Quarter: 2023Q1

REPORT INFORMATION
  Report Type: Spontaneous
  Country: FR (occurrence: FR)
  Receive Date: 20201013
  Receipt Date: 20230224
  Transmission Date: 20230417
  Serious: Yes (Death, Life-Threatening, Hospitalization, Other)
  Sender: FDA-Public Use
  Company Number: FR-SA-2017SA044106

PATIENT
  Age: 18 Year
  Sex: Female

DRUGS (37)
  1. OXYBUTYNIN CHLORIDE [Suspect]
     Active Substance: OXYBUTYNIN CHLORIDE
     Indication: Psychiatric symptom
     Dosage: 4 DF (1,1,2), QD
     Route: 065
  2. OXYBUTYNIN CHLORIDE [Suspect]
     Active Substance: OXYBUTYNIN CHLORIDE
     Dosage: 5 MG,TID
     Route: 065
  3. OXYBUTYNIN CHLORIDE [Suspect]
     Active Substance: OXYBUTYNIN CHLORIDE
     Dosage: 20 MG
     Route: 048
  4. OXYBUTYNIN CHLORIDE [Suspect]
     Active Substance: OXYBUTYNIN CHLORIDE
     Dosage: 5MG(1,1,2) DAILY
     Route: 048
  5. CLOZAPINE [Suspect]
     Active Substance: CLOZAPINE
     Indication: Psychiatric symptom
     Dosage: 100 MG,TID
     Route: 048
     Dates: start: 201305
  6. PHLOROGLUCINOL\1,3,5-TRIMETHOXYBENZENE [Suspect]
     Active Substance: PHLOROGLUCINOL\1,3,5-TRIMETHOXYBENZENE
     Indication: Psychiatric symptom
     Dosage: 1 DF, QD, (INTERMITTENTLY)
     Route: 065
  7. POLYETHYLENE GLYCOL 4000 [Suspect]
     Active Substance: POLYETHYLENE GLYCOL 4000
     Indication: Psychiatric symptom
     Dosage: UNK UNK,PRN
  8. POLYETHYLENE GLYCOL 4000 [Suspect]
     Active Substance: POLYETHYLENE GLYCOL 4000
     Dosage: 10 G
  9. DOLIPRANE [Suspect]
     Active Substance: ACETAMINOPHEN
     Indication: Psychiatric symptom
     Dosage: 1000 UNK
  10. DOLIPRANE [Suspect]
     Active Substance: ACETAMINOPHEN
     Dosage: 500 MG,QD
  11. DOLIPRANE [Suspect]
     Active Substance: ACETAMINOPHEN
     Dosage: 200 MG, QD2SDO (0,02)
  12. PHLOROGLUCINOL [Interacting]
     Active Substance: PHLOROGLUCINOL
     Dosage: UNK UNK,PRN
  13. DIAZEPAM [Interacting]
     Active Substance: DIAZEPAM
     Indication: Psychiatric symptom
     Dosage: 40 MG
     Route: 065
  14. DIAZEPAM [Interacting]
     Active Substance: DIAZEPAM
     Dosage: 30 UNK, 1.1.2
  15. DIAZEPAM [Interacting]
     Active Substance: DIAZEPAM
     Dosage: 10 MG,TID
  16. HYDROXYZINE [Interacting]
     Active Substance: HYDROXYZINE HYDROCHLORIDE
     Dosage: 25 MG,TID
  17. HYDROXYZINE [Interacting]
     Active Substance: HYDROXYZINE HYDROCHLORIDE
     Dosage: 150 UNK
  18. LEVOMEPROMAZINE [Suspect]
     Active Substance: LEVOMEPROMAZINE
     Indication: Psychiatric symptom
     Dosage: 200 MG
     Route: 065
  19. DIAZEPAM [Concomitant]
     Active Substance: DIAZEPAM
     Indication: Psychiatric symptom
     Dosage: 40 MG
     Route: 048
  20. DIAZEPAM [Concomitant]
     Active Substance: DIAZEPAM
     Dosage: 30 UNK, 1.1.2
     Route: 065
  21. DIAZEPAM [Concomitant]
     Active Substance: DIAZEPAM
     Dosage: 10 MG,TID
     Route: 065
  22. DIAZEPAM [Concomitant]
     Active Substance: DIAZEPAM
     Dosage: 10MG(1,1,2) DAILY
     Route: 065
  23. HYDROXYZINE [Concomitant]
     Active Substance: HYDROXYZINE HYDROCHLORIDE
     Indication: Product used for unknown indication
     Dosage: 25 MG,TID
     Route: 048
  24. HYDROXYZINE [Concomitant]
     Active Substance: HYDROXYZINE HYDROCHLORIDE
     Dosage: 150 UNK
     Route: 048
  25. HYDROXYZINE [Concomitant]
     Active Substance: HYDROXYZINE HYDROCHLORIDE
     Dosage: 25MG(2,2,2) DAILY
  26. PHLOROGLUCINOL [Concomitant]
     Active Substance: PHLOROGLUCINOL
     Indication: Product used for unknown indication
     Dosage: UNK UNK,PRN; AS REQUIRED
     Route: 065
  27. LEVOMEPROMAZINE [Concomitant]
     Active Substance: LEVOMEPROMAZINE
     Indication: Psychiatric symptom
     Dosage: 200MG
     Route: 048
  28. LEVOMEPROMAZINE [Concomitant]
     Active Substance: LEVOMEPROMAZINE
     Dosage: 50,50,100
     Route: 065
  29. DOLIPRANE [Concomitant]
     Active Substance: ACETAMINOPHEN
     Indication: Product used for unknown indication
     Dosage: 500MG(0,0,2)
     Route: 048
  30. DOLIPRANE [Concomitant]
     Active Substance: ACETAMINOPHEN
     Dosage: 200 MG, QD2SDO (0,02)
     Route: 065
  31. DOLIPRANE [Concomitant]
     Active Substance: ACETAMINOPHEN
     Dosage: 500 MG,QD
     Route: 065
  32. POLYETHYLENE GLYCOL 4000 [Concomitant]
     Active Substance: POLYETHYLENE GLYCOL 4000
     Indication: Psychiatric symptom
     Dosage: 1 PER DAY INTERMITTENTLY
     Route: 065
  33. POLYETHYLENE GLYCOL 4000 [Concomitant]
     Active Substance: POLYETHYLENE GLYCOL 4000
     Dosage: 10 G
     Route: 048
  34. POLYETHYLENE GLYCOL 4000 [Concomitant]
     Active Substance: POLYETHYLENE GLYCOL 4000
     Dosage: 1 PER DAY INTERMITTENTLY
     Route: 065
  35. NORDAZEPAM [Concomitant]
     Active Substance: NORDAZEPAM
     Dosage: UNK UNK,UNK
     Route: 065
  36. PHLOROGLUCINOL [Concomitant]
     Active Substance: PHLOROGLUCINOL
     Indication: Product used for unknown indication
     Route: 065
  37. NORDAZEPAM [Concomitant]
     Active Substance: NORDAZEPAM
     Dosage: UNK UNK,UNK

REACTIONS (13)
  - Necrosis ischaemic [Fatal]
  - Intestinal pseudo-obstruction [Fatal]
  - Intestinal obstruction [Fatal]
  - Megacolon [Fatal]
  - Haemoperitoneum [Unknown]
  - Intestinal haemorrhage [Fatal]
  - Gastrointestinal necrosis [Fatal]
  - Constipation [Fatal]
  - Toxicity to various agents [Unknown]
  - Antipsychotic drug level increased [Unknown]
  - Gastrointestinal obstruction [Fatal]
  - Drug interaction [Fatal]
  - Megacolon [Fatal]

NARRATIVE: CASE EVENT DATE: 20130801
